FAERS Safety Report 7964384-X (Version None)
Quarter: 2011Q4

REPORT INFORMATION
  Report Type: 
  Country: None (occurrence: None)
  Receive Date: 20111208
  Receipt Date: 20111206
  Transmission Date: 20120403
  Serious: Yes (Other)
  Sender: FDA-Public Use
  Company Number: JP-PFIZER INC-2011297876

PATIENT
  Age: 68 Year
  Sex: Male

DRUGS (4)
  1. DECADRON [Concomitant]
     Dosage: 8 MG, UNK
  2. SOLU-MEDROL [Suspect]
     Dosage: 125 MG, DAILY
     Route: 041
  3. GRANISETRON [Concomitant]
     Dosage: 3 MG, UNK
  4. FAMOTIDINE [Concomitant]
     Dosage: 20 MG, UNK

REACTIONS (4)
  - CHILLS [None]
  - FEELING COLD [None]
  - TREMOR [None]
  - COLD SWEAT [None]
